FAERS Safety Report 26052965 (Version 1)
Quarter: 2025Q4

REPORT INFORMATION
  Report Type: Spontaneous
  Country: US (occurrence: US)
  Receive Date: 20251117
  Receipt Date: 20251117
  Transmission Date: 20260118
  Serious: No
  Sender: MYLAN
  Company Number: US-MYLANLABS-2025M1094592

PATIENT
  Sex: Female

DRUGS (4)
  1. OCTREOTIDE ACETATE [Suspect]
     Active Substance: OCTREOTIDE ACETATE
     Indication: Product used for unknown indication
     Dosage: UNK
  2. OCTREOTIDE ACETATE [Suspect]
     Active Substance: OCTREOTIDE ACETATE
     Dosage: UNK
     Route: 065
  3. OCTREOTIDE ACETATE [Suspect]
     Active Substance: OCTREOTIDE ACETATE
     Dosage: UNK
     Route: 065
  4. OCTREOTIDE ACETATE [Suspect]
     Active Substance: OCTREOTIDE ACETATE
     Dosage: UNK

REACTIONS (2)
  - Device difficult to use [Unknown]
  - Product quality issue [Unknown]
